FAERS Safety Report 13081679 (Version 1)
Quarter: 2017Q1

REPORT INFORMATION
  Report Type: Spontaneous
  Country: US (occurrence: US)
  Receive Date: 20170103
  Receipt Date: 20170103
  Transmission Date: 20170428
  Serious: Yes (Other)
  Sender: FDA-Public Use
  Company Number: US-PFIZER INC-2016597048

PATIENT
  Sex: Female

DRUGS (1)
  1. XELJANZ XR [Suspect]
     Active Substance: TOFACITINIB CITRATE
     Dosage: 11 MG

REACTIONS (18)
  - Weight increased [Unknown]
  - Arthralgia [Unknown]
  - Fatigue [Unknown]
  - Night sweats [Unknown]
  - Headache [Unknown]
  - Hypoaesthesia [Unknown]
  - Paraesthesia [Unknown]
  - Visual acuity reduced [Unknown]
  - Sleep disorder [Unknown]
  - Deafness [Unknown]
  - Dry eye [Unknown]
  - Dyspepsia [Unknown]
  - Tenderness [Unknown]
  - Chills [Unknown]
  - Temperature intolerance [Unknown]
  - Musculoskeletal stiffness [Unknown]
  - Syncope [Unknown]
  - Asthenia [Unknown]
